FAERS Safety Report 4695014-0 (Version None)
Quarter: 2005Q2

REPORT INFORMATION
  Report Type: 
  Country: None (occurrence: None)
  Receive Date: 20050617
  Receipt Date: 20050609
  Transmission Date: 20051028
  Serious: Yes (Other)
  Sender: FDA-Public Use
  Company Number: 2004-12-0824

PATIENT
  Sex: Male

DRUGS (2)
  1. INTRON A [Suspect]
     Indication: HEPATITIS C
     Dosage: 10 MU INTRAMUSCULAR
     Route: 030
     Dates: start: 20041101, end: 20041215
  2. REBETOL [Suspect]
     Indication: HEPATITIS C
     Dosage: 600 MG ORAL
     Route: 048
     Dates: start: 20041101, end: 20041215

REACTIONS (2)
  - AGGRESSION [None]
  - CONFUSIONAL STATE [None]
